FAERS Safety Report 25925481 (Version 1)
Quarter: 2025Q4

REPORT INFORMATION
  Report Type: Spontaneous
  Country: US (occurrence: US)
  Receive Date: 20251015
  Receipt Date: 20251015
  Transmission Date: 20260118
  Serious: No
  Sender: SHIELD THERAPEUTICS
  Company Number: US-SHIELD THERAPEUTICS-US-STX-25-00222

PATIENT
  Age: 29 Year
  Sex: Female

DRUGS (1)
  1. ACCRUFER [Suspect]
     Active Substance: FERRIC MALTOL
     Indication: Iron deficiency
     Dosage: 30 MILLIGRAM, BID
     Route: 048
     Dates: start: 20250513

REACTIONS (5)
  - Maternal exposure during pregnancy [Unknown]
  - Diarrhoea [Unknown]
  - Incontinence [Unknown]
  - Head discomfort [Unknown]
  - Dizziness [Unknown]
